FAERS Safety Report 21661454 (Version 4)
Quarter: 2023Q1

REPORT INFORMATION
  Report Type: Report from Study
  Country: US (occurrence: US)
  Receive Date: 20221130
  Receipt Date: 20230215
  Transmission Date: 20230417
  Serious: Yes (Other)
  Sender: FDA-Public Use
  Company Number: US-ABBVIE-4216804

PATIENT
  Age: 66 Year
  Sex: Female

DRUGS (2)
  1. HUMIRA [Suspect]
     Active Substance: ADALIMUMAB
     Indication: Crohn^s disease
     Dosage: CITRATE FREE STRENGHT:40MG
     Route: 058
     Dates: start: 20220824, end: 20221130
  2. HUMIRA [Suspect]
     Active Substance: ADALIMUMAB
     Indication: Malignant melanoma

REACTIONS (7)
  - Malignant melanoma [Not Recovered/Not Resolved]
  - Therapeutic product effect decreased [Unknown]
  - Myalgia [Not Recovered/Not Resolved]
  - Surgery [Unknown]
  - Arthralgia [Not Recovered/Not Resolved]
  - Hepatic enzyme increased [Not Recovered/Not Resolved]
  - Blood test abnormal [Not Recovered/Not Resolved]

NARRATIVE: CASE EVENT DATE: 20221103
